FAERS Safety Report 7046130-X (Version None)
Quarter: 2010Q4

REPORT INFORMATION
  Report Type: 
  Country: None (occurrence: None)
  Receive Date: 20101013
  Receipt Date: 20101013
  Transmission Date: 20110411
  Serious: Yes (Hospitalization)
  Sender: FDA-Public Use
  Company Number: None

PATIENT
  Sex: Male
  Weight: 84.2 kg

DRUGS (3)
  1. CARBOPLATIN [Suspect]
     Dosage: 693 MG
     Dates: end: 20100303
  2. ERBITUX [Suspect]
     Dosage: 1764 MG
     Dates: end: 20100317
  3. TAXOL [Suspect]
     Dosage: 392 MG
     Dates: end: 20100303

REACTIONS (5)
  - FATIGUE [None]
  - GROIN PAIN [None]
  - METASTASES TO BONE [None]
  - WOUND DEHISCENCE [None]
  - WOUND INFECTION STAPHYLOCOCCAL [None]
